FAERS Safety Report 6186076-2 (Version None)
Quarter: 2009Q2

REPORT INFORMATION
  Report Type: 
  Country: None (occurrence: None)
  Receive Date: 20090511
  Receipt Date: 20090429
  Transmission Date: 20091009
  Serious: Yes (Hospitalization)
  Sender: FDA-Public Use
  Company Number: PHHO2007US13977

PATIENT
  Sex: Male

DRUGS (3)
  1. RAD 666 RAD+TAB+PTR [Interacting]
     Indication: HEART TRANSPLANT
     Dosage: 0.75 MG, BID
     Route: 048
     Dates: start: 20070322
  2. RAD 666 RAD+TAB+PTR [Interacting]
     Dosage: 0.25 MG, BID
     Route: 048
     Dates: start: 20070922, end: 20080618
  3. VALCYTE [Suspect]
     Indication: CYTOMEGALOVIRUS INFECTION
     Dosage: 450 MG DAILY
     Route: 048
     Dates: start: 20070918, end: 20080508

REACTIONS (3)
  - ANAEMIA [None]
  - DRUG INTERACTION [None]
  - ERYTHROPOIESIS ABNORMAL [None]
